FAERS Safety Report 7954480-5 (Version None)
Quarter: 2011Q4

REPORT INFORMATION
  Report Type: 
  Country: None (occurrence: None)
  Receive Date: 20111202
  Receipt Date: 20111123
  Transmission Date: 20120403
  Serious: No
  Sender: FDA-Public Use
  Company Number: US-B.I. PHARMACEUTICALS,INC./RIDGEFIELD-2011-BP-26764BP

PATIENT
  Age: 80 Year
  Sex: Male

DRUGS (14)
  1. PRADAXA [Suspect]
     Indication: ATRIAL FIBRILLATION
     Dosage: 300 MG
     Route: 048
     Dates: start: 20111001
  2. PRAVASTATIN [Concomitant]
     Indication: BLOOD CHOLESTEROL INCREASED
     Dosage: 10 MG
  3. NIASPAN [Concomitant]
     Indication: LIPIDS ABNORMAL
     Dosage: 1000 MG
  4. VITAMIN B-12 [Concomitant]
  5. VITAMIN D [Concomitant]
     Indication: SUPPLEMENTATION THERAPY
     Dosage: 5000 U
  6. MAGNESIUM SULFATE [Concomitant]
  7. ALPHA LUPEIC ACID [Concomitant]
     Indication: SUPPLEMENTATION THERAPY
  8. FOLIC ACID [Concomitant]
     Indication: CARDIAC DISORDER
  9. LISINOPRIL [Concomitant]
     Indication: HYPERTENSION
     Dosage: 20 MG
  10. LOVAZA [Concomitant]
     Indication: HYPERTENSION
  11. B6 [Concomitant]
  12. ASPIRIN [Concomitant]
     Indication: PROPHYLAXIS
     Dosage: 81 MG
  13. SOLATOL [Concomitant]
     Indication: TACHYCARDIA
     Dosage: 160 MG
  14. ANDROSAL [Concomitant]
     Indication: SUPPLEMENTATION THERAPY

REACTIONS (6)
  - DIZZINESS [None]
  - BLOOD PRESSURE DECREASED [None]
  - ANORECTAL DISCOMFORT [None]
  - NERVOUSNESS [None]
  - INTRAOCULAR PRESSURE INCREASED [None]
  - LACRIMATION INCREASED [None]
